FAERS Safety Report 8524316-2 (Version None)
Quarter: 2012Q3

REPORT INFORMATION
  Report Type: 
  Country: None (occurrence: None)
  Receive Date: 20120716
  Receipt Date: 20120716
  Transmission Date: 20120928
  Serious: Yes (Other)
  Sender: FDA-Public Use
  Company Number: None

PATIENT
  Sex: Female

DRUGS (1)
  1. BOTOX 200 UNITS ALLERGAN  200 UNITS EVERY 3 MONTHS IM [Suspect]
     Indication: MIGRAINE WITH AURA
     Dosage: 200 UNITS EVERY 3 MONTHS IM
     Route: 030
     Dates: start: 20120425, end: 20120425

REACTIONS (2)
  - ILL-DEFINED DISORDER [None]
  - SWELLING [None]
